FAERS Safety Report 4518676-7 (Version None)
Quarter: 2004Q4

REPORT INFORMATION
  Report Type: 
  Country: None (occurrence: None)
  Receive Date: 20041201
  Receipt Date: 20041102
  Transmission Date: 20050328
  Serious: Yes (Congenital Anomaly)
  Sender: FDA-Public Use
  Company Number: 54756/463

PATIENT
  Sex: Male

DRUGS (3)
  1. LEVONORGESTREL [Suspect]
     Indication: POST COITAL CONTRACEPTION
     Dosage: TRANSPLACENTAL
     Route: 064
     Dates: start: 20040101, end: 20040101
  2. PEPTAC (SODIUM ALGINATE, SODIUM BICARBONATE) [Concomitant]
  3. GAVISCON [Concomitant]

REACTIONS (6)
  - CONGENITAL GENITOURINARY ABNORMALITY [None]
  - CONGENITAL VENTRICULAR SEPTAL DEFECT [None]
  - CRYPTORCHISM [None]
  - HERNIA CONGENITAL [None]
  - INGUINAL HERNIA, OBSTRUCTIVE [None]
  - MATERNAL DRUGS AFFECTING FOETUS [None]
